FAERS Safety Report 8406314-2 (Version None)
Quarter: 2012Q2

REPORT INFORMATION
  Report Type: 
  Country: None (occurrence: None)
  Receive Date: 20120529
  Receipt Date: 20060515
  Transmission Date: 20120825
  Serious: Yes (Death)
  Sender: FDA-Public Use
  Company Number: 15691-USA-06-1369

PATIENT
  Age: 80 Year
  Sex: Male

DRUGS (7)
  1. SPIRONOLACTONE [Concomitant]
  2. PHENINDIONE (PHENINDIONE) [Concomitant]
  3. ISOSORBIDE DINITRATE [Concomitant]
  4. FUROSEMIDE [Concomitant]
  5. ENALAPRIL MALEATE [Concomitant]
  6. BISOPROLOL FUMARATE [Concomitant]
  7. TOLVAPTAN (TOLVAPTAN(V.41)) 30MG [Suspect]
     Indication: CARDIAC FAILURE CONGESTIVE
     Dosage: 30 MG, QD, ORAL
     Route: 048
     Dates: start: 20050322

REACTIONS (2)
  - SUDDEN DEATH [None]
  - CHRONIC OBSTRUCTIVE PULMONARY DISEASE [None]
